FAERS Safety Report 22681452 (Version 2)
Quarter: 2023Q4

REPORT INFORMATION
  Report Type: Spontaneous
  Country: CN (occurrence: None)
  Receive Date: 20230707
  Receipt Date: 20231121
  Transmission Date: 20240109
  Serious: Yes (Hospitalization)
  Sender: FDA-Public Use
  Company Number: 2023A150513

PATIENT
  Age: 69 Year
  Sex: Female

DRUGS (2)
  1. OSIMERTINIB [Suspect]
     Active Substance: OSIMERTINIB
     Indication: Non-small cell lung cancer
     Route: 048
  2. AXITINIB [Concomitant]
     Active Substance: AXITINIB
     Route: 048

REACTIONS (3)
  - Intestinal congestion [Recovered/Resolved]
  - Large intestine polyp [Unknown]
  - Gastrointestinal haemorrhage [Recovered/Resolved]
